FAERS Safety Report 5910869-7 (Version None)
Quarter: 2008Q4

REPORT INFORMATION
  Report Type: 
  Country: None (occurrence: None)
  Receive Date: 20081007
  Receipt Date: 20080603
  Transmission Date: 20090506
  Serious: Yes (Other)
  Sender: FDA-Public Use
  Company Number: US-ASTRAZENECA-2008UW11196

PATIENT
  Age: 71 Year
  Sex: Female
  Weight: 61.2 kg

DRUGS (3)
  1. ARIMIDEX [Suspect]
     Indication: BREAST CANCER FEMALE
     Route: 048
  2. FOSAMAX [Concomitant]
  3. THYROID MEDICINE [Concomitant]

REACTIONS (2)
  - HYPERTENSION [None]
  - LOW DENSITY LIPOPROTEIN INCREASED [None]
